FAERS Safety Report 6982737-3 (Version None)
Quarter: 2010Q3

REPORT INFORMATION
  Report Type: 
  Country: None (occurrence: None)
  Receive Date: 20100914
  Receipt Date: 20100314
  Transmission Date: 20110219
  Serious: No
  Sender: FDA-Public Use
  Company Number: US-PFIZER INC-2010032691

PATIENT
  Sex: Male
  Weight: 104 kg

DRUGS (1)
  1. LYRICA [Suspect]
     Indication: HYPOAESTHESIA
     Dosage: 150 MG, UNK
     Route: 048
     Dates: start: 20100311

REACTIONS (3)
  - FEELING JITTERY [None]
  - NERVOUSNESS [None]
  - SOMNOLENCE [None]
